FAERS Safety Report 6359377-2 (Version None)
Quarter: 2009Q3

REPORT INFORMATION
  Report Type: 
  Country: None (occurrence: None)
  Receive Date: 20090917
  Receipt Date: 20090914
  Transmission Date: 20100115
  Serious: Yes (Other)
  Sender: FDA-Public Use
  Company Number: CA-BRISTOL-MYERS SQUIBB COMPANY-14780886

PATIENT
  Age: 54 Year
  Sex: Male

DRUGS (13)
  1. STAVUDINE [Suspect]
     Indication: HIV INFECTION
  2. DIDANOSINE [Suspect]
     Indication: HIV INFECTION
  3. ATAZANAVIR [Suspect]
     Indication: HIV INFECTION
  4. ZIDOVUDINE [Suspect]
     Indication: HIV INFECTION
  5. LAMIVUDINE [Suspect]
     Indication: HIV INFECTION
  6. INDINIVIR SULFATE [Suspect]
     Indication: HIV INFECTION
  7. RITONAVIR [Suspect]
     Indication: HIV INFECTION
  8. SAQUINAVIR [Suspect]
     Indication: HIV INFECTION
  9. ABACAVIR [Suspect]
     Indication: HIV INFECTION
  10. LOPINAVIR [Suspect]
     Indication: HIV INFECTION
  11. NEVIRAPINE [Suspect]
     Indication: HIV INFECTION
  12. ENFUVIRTIDE [Suspect]
     Indication: HIV INFECTION
  13. TENOFOVIR DISOPROXIL FUMARATE [Suspect]
     Indication: HIV INFECTION

REACTIONS (2)
  - LIPODYSTROPHY ACQUIRED [None]
  - PROGRESSIVE EXTERNAL OPHTHALMOPLEGIA [None]
